FAERS Safety Report 13269142 (Version 1)
Quarter: 2017Q1

REPORT INFORMATION
  Report Type: Spontaneous
  Country: US (occurrence: US)
  Receive Date: 20170224
  Receipt Date: 20170224
  Transmission Date: 20170428
  Serious: Yes (Hospitalization)
  Sender: FDA-Public Use
  Company Number: US-B.I. PHARMACEUTICALS,INC./RIDGEFIELD-2017-BI-009413

PATIENT
  Sex: Female

DRUGS (21)
  1. ALBUTEROL SULFATE. [Concomitant]
     Active Substance: ALBUTEROL SULFATE
     Indication: PRODUCT USED FOR UNKNOWN INDICATION
     Dosage: DOSE: (2.5 MG/3 ML) 0.083%?300 NEBU
     Route: 055
     Dates: start: 20170130
  2. INCRUSE ELLIPTA [Concomitant]
     Active Substance: UMECLIDINIUM BROMIDE
     Indication: PRODUCT USED FOR UNKNOWN INDICATION
     Dosage: DOSE: 62.5 MCG/INH; POWDER BREATH ACTIVATED: QUANTITY: 30 AEROSOL POWDER BREATH ACTIVATED DISP PACK;
     Route: 055
     Dates: start: 20170128
  3. NICOTINE MINI [Concomitant]
     Active Substance: NICOTINE
     Indication: PRODUCT USED FOR UNKNOWN INDICATION
     Route: 048
     Dates: start: 20170128
  4. PROAIR HFA [Concomitant]
     Active Substance: ALBUTEROL SULFATE
     Indication: WHEEZING
  5. SPIRIVA [Suspect]
     Active Substance: TIOTROPIUM BROMIDE MONOHYDRATE
     Indication: PRODUCT USED FOR UNKNOWN INDICATION
     Route: 048
     Dates: start: 20150609
  6. BREO ELLIPTA [Concomitant]
     Active Substance: FLUTICASONE FUROATE\VILANTEROL TRIFENATATE
     Indication: PRODUCT USED FOR UNKNOWN INDICATION
     Dosage: DOSE: 200-25 MICROGRAM; POWDER BREATH ACTIVATED; 1 PUFF DAILY
     Route: 055
     Dates: start: 20170128
  7. RANITIDINE HCL [Concomitant]
     Active Substance: RANITIDINE HYDROCHLORIDE
     Indication: PRODUCT USED FOR UNKNOWN INDICATION
     Route: 048
     Dates: start: 20060829
  8. VITAMIN D [Concomitant]
     Active Substance: CHOLECALCIFEROL
     Indication: PRODUCT USED FOR UNKNOWN INDICATION
     Route: 048
     Dates: start: 20170202
  9. ACEBUTOLOL HCL [Concomitant]
     Active Substance: ACEBUTOLOL
     Indication: PRODUCT USED FOR UNKNOWN INDICATION
     Dosage: QUANTITY 90 CAPSULES
     Route: 048
     Dates: start: 20160725
  10. WARFARIN SODIUM. [Concomitant]
     Active Substance: WARFARIN SODIUM
     Indication: PRODUCT USED FOR UNKNOWN INDICATION
     Dosage: FREQUENCY: TAKE1/2 TO 1 TABLET DAILY AS DIRECTED BY ANTICOAGULATION CLINIC.
     Route: 048
     Dates: start: 20060829
  11. FLUTICASONE PROPIONATE. [Concomitant]
     Active Substance: FLUTICASONE PROPIONATE
     Indication: PRODUCT USED FOR UNKNOWN INDICATION
     Dosage: DOSE : 50 MCG/ACT; 2 SPRAYS IN EACH NOSTRILS
     Route: 055
     Dates: start: 20090923
  12. PROAIR HFA [Concomitant]
     Active Substance: ALBUTEROL SULFATE
     Indication: DYSPNOEA
     Dosage: FREQUENCY 1-2 PUFFS VIA AEROCHAMBER EVERY 4-6 HOURS FOR SHORTNESS OF BREATH AND WHEEZING AND/OR 15MI
     Route: 055
     Dates: start: 20170207
  13. ATORVASTATIN CALCIUM. [Concomitant]
     Active Substance: ATORVASTATIN CALCIUM
     Indication: PRODUCT USED FOR UNKNOWN INDICATION
     Dosage: QUANTITY 30 TABLET
     Route: 048
     Dates: start: 20140917
  14. CHANTIX [Concomitant]
     Active Substance: VARENICLINE TARTRATE
     Indication: PRODUCT USED FOR UNKNOWN INDICATION
     Dosage: FREQUENCY TAKE 0.5 MG TABLET DAILY ON DAYS 1-3, THEN ONE  0.5 MG TABLET TWICE DAILY ON DAYS 4-7, THE
     Route: 048
     Dates: start: 20170128
  15. FLUOXETINE HCL [Concomitant]
     Active Substance: FLUOXETINE HYDROCHLORIDE
     Indication: PRODUCT USED FOR UNKNOWN INDICATION
     Dosage: QUANTITY: 90 CAPSULE
     Route: 048
  16. NICOTINE. [Concomitant]
     Active Substance: NICOTINE
     Indication: PRODUCT USED FOR UNKNOWN INDICATION
     Dosage: 14 MG/24 HR; PLACE 1 PATCH EVERY MORNING
     Route: 062
     Dates: start: 20170128
  17. PREDNISONE. [Concomitant]
     Active Substance: PREDNISONE
     Indication: PRODUCT USED FOR UNKNOWN INDICATION
     Route: 048
     Dates: start: 20170130
  18. TRAMADOL HCL [Concomitant]
     Active Substance: TRAMADOL HYDROCHLORIDE
     Indication: PRODUCT USED FOR UNKNOWN INDICATION
     Route: 048
     Dates: start: 20101129
  19. VENTOLIN HFA [Concomitant]
     Active Substance: ALBUTEROL SULFATE
     Indication: DYSPNOEA
     Dosage: DOSE 180 (90 BASE) MCG /ACT; FREQUENCY: INHALE 1-2 PUFFS EVERY 2-6 HOURS AS NEEDED FOR SHORTNESS OF
     Route: 055
     Dates: start: 20170202
  20. CLONAZEPAM. [Concomitant]
     Active Substance: CLONAZEPAM
     Indication: PRODUCT USED FOR UNKNOWN INDICATION
     Dosage: QUANTITY: 30 TABLET
     Route: 048
     Dates: start: 20060829
  21. IPRATROPIUM-ALBUTEROL [Concomitant]
     Active Substance: ALBUTEROL\IPRATROPIUM
     Indication: PRODUCT USED FOR UNKNOWN INDICATION
     Dosage: DOSE: 0.5-2.5 (3) MG/3ML;  ONE 3 ML VIAL 4XDAILY VIA NEBULIZATION
     Route: 055
     Dates: start: 20170128

REACTIONS (1)
  - Chronic obstructive pulmonary disease [Unknown]
